FAERS Safety Report 11105036 (Version 1)
Quarter: 2015Q2

REPORT INFORMATION
  Report Type: Spontaneous
  Country: PL (occurrence: PL)
  Receive Date: 20150511
  Receipt Date: 20150511
  Transmission Date: 20150821
  Serious: Yes (Other)
  Sender: FDA-Public Use
  Company Number: PL-HOSPIRA-2855257

PATIENT
  Age: 70 Year
  Sex: Female
  Weight: 56 kg

DRUGS (2)
  1. FLUOROURACIL. [Suspect]
     Active Substance: FLUOROURACIL
     Indication: RECTOSIGMOID CANCER
     Route: 042
     Dates: start: 20150223, end: 20150225
  2. IRINOTECAN HYDROCHLORIDE. [Suspect]
     Active Substance: IRINOTECAN HYDROCHLORIDE
     Indication: RECTOSIGMOID CANCER
     Route: 042
     Dates: start: 20150223, end: 20150223

REACTIONS (4)
  - Neutropenia [Recovering/Resolving]
  - Pharyngitis [Recovering/Resolving]
  - Leukopenia [Recovering/Resolving]
  - Asthenia [Recovering/Resolving]

NARRATIVE: CASE EVENT DATE: 20150306
